FAERS Safety Report 7796648-7 (Version None)
Quarter: 2011Q4

REPORT INFORMATION
  Report Type: 
  Country: None (occurrence: None)
  Receive Date: 20111005
  Receipt Date: 20110923
  Transmission Date: 20120403
  Serious: Yes (Disabling)
  Sender: FDA-Public Use
  Company Number: US-BAYER-2011-090602

PATIENT
  Sex: Female

DRUGS (3)
  1. YAZ [Suspect]
     Dosage: UNK
     Dates: start: 20060501, end: 20090901
  2. DROSPIRENONE AND ETHINYL ESTRADIOL [Suspect]
     Dosage: UNK
     Dates: start: 20060501, end: 20090901
  3. YASMIN [Suspect]
     Dosage: UNK
     Dates: start: 20060501, end: 20090901

REACTIONS (6)
  - INJURY [None]
  - DEFORMITY [None]
  - DISABILITY [None]
  - PAIN [None]
  - QUALITY OF LIFE DECREASED [None]
  - CEREBROVASCULAR ACCIDENT [None]
